FAERS Safety Report 7456307-7 (Version None)
Quarter: 2011Q2

REPORT INFORMATION
  Report Type: 
  Country: None (occurrence: None)
  Receive Date: 20110503
  Receipt Date: 20110427
  Transmission Date: 20111010
  Serious: Yes (Other)
  Sender: FDA-Public Use
  Company Number: CHPA2011US06023

PATIENT
  Age: 73 Year
  Sex: Female
  Weight: 47.166 kg

DRUGS (5)
  1. MAALOX MS TOTAL STOMACH RELIEF [Suspect]
     Indication: DYSPEPSIA
     Dosage: 1 TSP, PRN
     Route: 048
  2. MAALOX ADV MAXIMUM STRENGTH ANTACID/ANTIGAS [Suspect]
     Indication: DYSPEPSIA
     Dosage: 1 TSP, PRN
     Route: 048
  3. MAALOX ADV MAXIMUM STRENGTH ANTACID/ANTIGAS [Suspect]
     Indication: ABDOMINAL DISCOMFORT
  4. MAALOX MS TOTAL STOMACH RELIEF [Suspect]
     Indication: ABDOMINAL DISCOMFORT
  5. MYLANTA                                 /USA/ [Suspect]
     Indication: DYSPEPSIA
     Dosage: 1 TSP, ONCE/SINGLE
     Route: 048

REACTIONS (2)
  - BREAST CANCER [None]
  - BREAST LUMP REMOVAL [None]
